FAERS Safety Report 8305416-9 (Version None)
Quarter: 2012Q2

REPORT INFORMATION
  Report Type: 
  Country: None (occurrence: None)
  Receive Date: 20120423
  Receipt Date: 20120411
  Transmission Date: 20120825
  Serious: Yes (Hospitalization)
  Sender: FDA-Public Use
  Company Number: JP-BRISTOL-MYERS SQUIBB COMPANY-16520843

PATIENT
  Age: 58 Year
  Sex: Male

DRUGS (2)
  1. TEGAFUR + GIMERACIL + OTERACIL POTASSIUM [Suspect]
     Indication: NON-SMALL CELL LUNG CANCER
  2. PARAPLATIN AQ [Suspect]
     Indication: NON-SMALL CELL LUNG CANCER
     Dates: start: 20110501

REACTIONS (2)
  - HAEMOPTYSIS [None]
  - VASCULAR PSEUDOANEURYSM [None]
